FAERS Safety Report 7141218-7 (Version None)
Quarter: 2010Q4

REPORT INFORMATION
  Report Type: 
  Country: None (occurrence: None)
  Receive Date: 20101122
  Receipt Date: 20100812
  Transmission Date: 20110411
  Serious: Yes (Death, Other)
  Sender: FDA-Public Use
  Company Number: PPC201000060

PATIENT
  Age: 53 Year
  Sex: Female

DRUGS (7)
  1. AMIODARONE HCL [Suspect]
     Indication: CARDIAC FAILURE CONGESTIVE
     Dosage: 600 MG, ONCE; INTRAVENOUS
     Route: 042
  2. POTASSIUM PERCHLORATE SOLUTION [Concomitant]
  3. THIAMAZOL [Concomitant]
  4. SUFENTANIL CITRATE [Concomitant]
  5. ETOMIDATE [Concomitant]
  6. ROCURONIUM BROMIDE [Concomitant]
  7. NOREPHINEPHRINE [Concomitant]

REACTIONS (7)
  - ATRIAL FIBRILLATION [None]
  - BIFASCICULAR BLOCK [None]
  - HAEMODYNAMIC INSTABILITY [None]
  - HYPERTHYROIDISM [None]
  - MUSCULAR WEAKNESS [None]
  - VENTRICULAR FIBRILLATION [None]
  - VENTRICULAR TACHYCARDIA [None]
